FAERS Safety Report 19851724 (Version 1)
Quarter: 2021Q3

REPORT INFORMATION
  Report Type: Spontaneous
  Country: CN (occurrence: CN)
  Receive Date: 20210917
  Receipt Date: 20210917
  Transmission Date: 20211014
  Serious: Yes (Other)
  Sender: FDA-Public Use
  Company Number: CN-BAXTER-2021BAX024390

PATIENT
  Age: 49 Year
  Sex: Female
  Weight: 60 kg

DRUGS (4)
  1. ENDOXAN [Suspect]
     Active Substance: CYCLOPHOSPHAMIDE
     Indication: BREAST CANCER
     Dosage: CYCLOPHOSPHAMIDE INJECTION 0.9G + 0.9% SODIUM CHLORIDE INJECTION 50ML
     Route: 041
     Dates: start: 20210205, end: 20210205
  2. DOCETAXEL. [Suspect]
     Active Substance: DOCETAXEL
     Indication: BREAST CANCER
     Dosage: DOCETAXEL FOR INJECTION 120 MG + 0.9% SODIUM CHLORIDE INJECTION 250ML
     Route: 041
     Dates: start: 20210205, end: 20210205
  3. 0.9% SODIUM CHLORIDE INJECTION [Suspect]
     Active Substance: SODIUM CHLORIDE
     Indication: MEDICATION DILUTION
     Dosage: CYCLOPHOSPHAMIDE INJECTION 0.9G + 0.9% SODIUM CHLORIDE INJECTION 50ML
     Route: 041
     Dates: start: 20210205, end: 20210205
  4. 0.9% SODIUM CHLORIDE INJECTION [Suspect]
     Active Substance: SODIUM CHLORIDE
     Dosage: DOCETAXEL FOR INJECTION 120 MG + 0.9% SODIUM CHLORIDE INJECTION 250ML
     Route: 041
     Dates: start: 20210205, end: 20210205

REACTIONS (1)
  - Myelosuppression [Recovered/Resolved]

NARRATIVE: CASE EVENT DATE: 20210211
